FAERS Safety Report 8179245-3 (Version None)
Quarter: 2012Q1

REPORT INFORMATION
  Report Type: 
  Country: None (occurrence: None)
  Receive Date: 20120302
  Receipt Date: 20120220
  Transmission Date: 20120608
  Serious: Yes (Other)
  Sender: FDA-Public Use
  Company Number: US-BAYER-2011-088344

PATIENT
  Age: 27 Year
  Sex: Female
  Weight: 67.12 kg

DRUGS (1)
  1. YAZ [Suspect]
     Indication: CONTRACEPTION
     Dosage: UNK
     Dates: start: 20090701, end: 20091001

REACTIONS (4)
  - BILIARY COLIC [None]
  - CHOLECYSTITIS [None]
  - INJURY [None]
  - PAIN [None]
